FAERS Safety Report 21032529 (Version 10)
Quarter: 2023Q2

REPORT INFORMATION
  Report Type: Report from Study
  Country: US (occurrence: US)
  Receive Date: 20220701
  Receipt Date: 20230617
  Transmission Date: 20230721
  Serious: Yes (Hospitalization, Other)
  Sender: FDA-Public Use
  Company Number: US-NOVARTISTESTPH-NVSC2022US149445

PATIENT
  Age: 59 Year
  Sex: Female

DRUGS (2)
  1. KESIMPTA [Suspect]
     Active Substance: OFATUMUMAB
     Indication: Multiple sclerosis
     Dosage: 20 MG, QMO (OTHER DOSAGE 0.4 ML)
     Route: 058
     Dates: start: 20220330
  2. KESIMPTA [Suspect]
     Active Substance: OFATUMUMAB
     Dosage: 20 MG, QMO
     Route: 058
     Dates: start: 20220418

REACTIONS (8)
  - Lower limb fracture [Unknown]
  - Colon cancer [Unknown]
  - Constipation [Unknown]
  - Hypoaesthesia [Unknown]
  - Fall [Unknown]
  - Urinary tract infection [Unknown]
  - Yellow skin [Unknown]
  - Product dose omission issue [Not Recovered/Not Resolved]

NARRATIVE: CASE EVENT DATE: 20220626
